FAERS Safety Report 20685498 (Version 3)
Quarter: 2022Q2

REPORT INFORMATION
  Report Type: Report from Study
  Country: CA (occurrence: CA)
  Receive Date: 20220407
  Receipt Date: 20220617
  Transmission Date: 20220721
  Serious: Yes (Death, Hospitalization, Other)
  Sender: FDA-Public Use
  Company Number: CA-JNJFOC-20220407390

PATIENT
  Age: 25 Year
  Sex: Male
  Weight: 66.7 kg

DRUGS (1)
  1. REMICADE [Suspect]
     Active Substance: INFLIXIMAB
     Indication: Crohn^s disease
     Dosage: 338 MG?START DATE ALSO GIVEN 11/MAY/2010
     Route: 042
     Dates: start: 20080320, end: 20220228

REACTIONS (12)
  - Endocarditis [Fatal]
  - Oesophageal infection [Fatal]
  - Sepsis [Not Recovered/Not Resolved]
  - Cardiac infection [Not Recovered/Not Resolved]
  - Dental operation [Unknown]
  - Bone marrow failure [Unknown]
  - Malaise [Unknown]
  - Tooth extraction [Unknown]
  - Procedural pain [Unknown]
  - Post procedural swelling [Unknown]
  - Rash [Unknown]
  - Off label use [Unknown]

NARRATIVE: CASE EVENT DATE: 20080320
